FAERS Safety Report 9109805 (Version 1)
Quarter: 2013Q1

REPORT INFORMATION
  Report Type: Spontaneous
  Country: US (occurrence: US)
  Receive Date: 20130222
  Receipt Date: 20130222
  Transmission Date: 20140127
  Serious: Yes (Other)
  Sender: FDA-Public Use
  Company Number: US-ASTRAZENECA-2013SE10704

PATIENT
  Sex: Female

DRUGS (4)
  1. PRILOSEC OTC [Suspect]
     Indication: NAUSEA
     Dosage: 14 DAYS P-OTC THERAPY AS NEEDED
     Route: 048
  2. PRILOSEC OTC [Interacting]
     Indication: NAUSEA
     Route: 048
  3. DIGOXIN [Interacting]
     Route: 065
  4. ASPIRIN [Concomitant]
     Dosage: DAILY

REACTIONS (10)
  - Drug interaction [Unknown]
  - Fall [Unknown]
  - Head injury [Unknown]
  - Chest pain [Unknown]
  - Musculoskeletal pain [Unknown]
  - Weight decreased [Unknown]
  - Vomiting [Unknown]
  - Nausea [Unknown]
  - Dizziness [Unknown]
  - Off label use [Unknown]
